FAERS Safety Report 18277534 (Version 1)
Quarter: 2020Q3

REPORT INFORMATION
  Report Type: Spontaneous
  Country: US (occurrence: US)
  Receive Date: 20200917
  Receipt Date: 20200917
  Transmission Date: 20201103
  Serious: Yes (Other)
  Sender: FDA-Public Use
  Company Number: None

PATIENT
  Age: 59 Year
  Sex: Male

DRUGS (9)
  1. JULUCA [Concomitant]
     Active Substance: DOLUTEGRAVIR SODIUM\RILPIVIRINE HYDROCHLORIDE
  2. BUPROPION. [Concomitant]
     Active Substance: BUPROPION
  3. LYRICA [Concomitant]
     Active Substance: PREGABALIN
  4. HYDROCHLORIDE XL [Concomitant]
  5. MONTELUKAST SODIUM. [Concomitant]
     Active Substance: MONTELUKAST SODIUM
  6. BUPROPION XL [Suspect]
     Active Substance: BUPROPION HYDROCHLORIDE
     Indication: MAJOR DEPRESSION
     Dosage: ?          QUANTITY:1 TABLET(S);?
     Route: 048
     Dates: start: 20200807, end: 20200814
  7. BUPROPION XL [Suspect]
     Active Substance: BUPROPION HYDROCHLORIDE
     Indication: ANXIETY
     Dosage: ?          QUANTITY:1 TABLET(S);?
     Route: 048
     Dates: start: 20200807, end: 20200814
  8. CLONAZEPAM. [Concomitant]
     Active Substance: CLONAZEPAM
  9. ESCITALOPRAM [Concomitant]
     Active Substance: ESCITALOPRAM OXALATE

REACTIONS (12)
  - Product substitution issue [None]
  - Tachycardia [None]
  - Confusional state [None]
  - Irritability [None]
  - Depression [None]
  - Migraine [None]
  - Hallucination [None]
  - Heart rate irregular [None]
  - Suicidal ideation [None]
  - Palpitations [None]
  - Agitation [None]
  - Anxiety [None]

NARRATIVE: CASE EVENT DATE: 20200807
